FAERS Safety Report 15969060 (Version 1)
Quarter: 2019Q1

REPORT INFORMATION
  Report Type: Spontaneous
  Country: KR (occurrence: KR)
  Receive Date: 20190215
  Receipt Date: 20190215
  Transmission Date: 20190418
  Serious: Yes (Other)
  Sender: FDA-Public Use
  Company Number: PHHY2019KR036091

PATIENT
  Age: 38 Year
  Sex: Female

DRUGS (21)
  1. ISONIAZID. [Suspect]
     Active Substance: ISONIAZID
     Indication: PULMONARY TUBERCULOSIS
     Dosage: 0.5 MG, UNK
     Route: 048
  2. ETHAMBUTOL [Suspect]
     Active Substance: ETHAMBUTOL HYDROCHLORIDE
     Dosage: 12.8 MG, UNK
     Route: 048
  3. RIFAMPIN. [Suspect]
     Active Substance: RIFAMPIN
     Dosage: 200 MG, UNK
     Route: 048
  4. ISONIAZID. [Suspect]
     Active Substance: ISONIAZID
     Dosage: 1 MG, UNK
     Route: 048
  5. ISONIAZID. [Suspect]
     Active Substance: ISONIAZID
     Dosage: 15 MG, UNK
     Route: 048
  6. ETHAMBUTOL [Suspect]
     Active Substance: ETHAMBUTOL HYDROCHLORIDE
     Indication: PULMONARY TUBERCULOSIS
     Dosage: 0.8 MG, UNK
     Route: 048
  7. ETHAMBUTOL [Suspect]
     Active Substance: ETHAMBUTOL HYDROCHLORIDE
     Dosage: 1.6 MG, UNK
     Route: 048
  8. RIFAMPIN. [Suspect]
     Active Substance: RIFAMPIN
     Dosage: 300 MG, UNK
     Route: 048
  9. ISONIAZID. [Suspect]
     Active Substance: ISONIAZID
     Dosage: 4 MG, UNK
     Route: 048
  10. ISONIAZID. [Suspect]
     Active Substance: ISONIAZID
     Dosage: 8.5 MG, UNK
     Route: 048
  11. ETHAMBUTOL [Suspect]
     Active Substance: ETHAMBUTOL HYDROCHLORIDE
     Dosage: 3.2 MG, UNK
     Route: 048
  12. ETHAMBUTOL [Suspect]
     Active Substance: ETHAMBUTOL HYDROCHLORIDE
     Dosage: 32 MG, UNK
     Route: 048
  13. ETHAMBUTOL [Suspect]
     Active Substance: ETHAMBUTOL HYDROCHLORIDE
     Dosage: 200 MG, UNK
     Route: 048
  14. RIFAMPIN. [Suspect]
     Active Substance: RIFAMPIN
     Indication: PULMONARY TUBERCULOSIS
     Dosage: 100 MG, UNK
     Route: 048
  15. ISONIAZID. [Suspect]
     Active Substance: ISONIAZID
     Dosage: 2 MG, UNK
     Route: 048
  16. ISONIAZID. [Suspect]
     Active Substance: ISONIAZID
     Dosage: 75 MG, UNK
     Route: 048
  17. ETHAMBUTOL [Suspect]
     Active Substance: ETHAMBUTOL HYDROCHLORIDE
     Dosage: 50 MG, UNK
     Route: 048
  18. ISONIAZID. [Suspect]
     Active Substance: ISONIAZID
     Dosage: 35 MG, UNK
     Route: 048
  19. ISONIAZID. [Suspect]
     Active Substance: ISONIAZID
     Dosage: 160 MG, UNK
     Route: 048
  20. ETHAMBUTOL [Suspect]
     Active Substance: ETHAMBUTOL HYDROCHLORIDE
     Dosage: 400 MG, UNK
     Route: 048
  21. ETHAMBUTOL [Suspect]
     Active Substance: ETHAMBUTOL HYDROCHLORIDE
     Dosage: 96 MG, UNK
     Route: 048

REACTIONS (1)
  - Drug reaction with eosinophilia and systemic symptoms [Unknown]
